FAERS Safety Report 23328492 (Version 1)
Quarter: 2023Q4

REPORT INFORMATION
  Report Type: Spontaneous
  Country: US (occurrence: US)
  Receive Date: 20231221
  Receipt Date: 20231221
  Transmission Date: 20240109
  Serious: Yes (Death)
  Sender: FDA-Public Use
  Company Number: US-PRINSTON PHARMACEUTICAL INC.-2023PRN00627

PATIENT
  Age: 82 Year

DRUGS (8)
  1. DONEPEZIL [Suspect]
     Active Substance: DONEPEZIL
     Indication: Completed suicide
  2. LISINOPRIL [Suspect]
     Active Substance: LISINOPRIL
     Indication: Completed suicide
  3. BACLOFEN [Suspect]
     Active Substance: BACLOFEN
     Indication: Completed suicide
  4. FINASTERIDE [Suspect]
     Active Substance: FINASTERIDE
     Indication: Completed suicide
  5. SOTALOL [Suspect]
     Active Substance: SOTALOL
     Indication: Completed suicide
  6. APIXABAN [Suspect]
     Active Substance: APIXABAN
     Indication: Completed suicide
  7. KETOROLAC [Suspect]
     Active Substance: KETOROLAC TROMETHAMINE
     Indication: Completed suicide
  8. TAMSULOSIN [Suspect]
     Active Substance: TAMSULOSIN
     Indication: Completed suicide

REACTIONS (2)
  - Completed suicide [Fatal]
  - Overdose [Fatal]
